FAERS Safety Report 8889811 (Version 1)
Quarter: 2012Q4

REPORT INFORMATION
  Report Type: 
  Country: US (occurrence: US)
  Receive Date: 20121107
  Receipt Date: 20121107
  Transmission Date: 20130627
  Serious: No
  Sender: FDA-Public Use
  Company Number: US-ABBOTT-11P-163-0874152-00

PATIENT
  Sex: Male
  Weight: 149.82 kg

DRUGS (1)
  1. TRICOR [Suspect]
     Indication: HIGH DENSITY LIPOPROTEIN DECREASED

REACTIONS (1)
  - Coeliac disease [Not Recovered/Not Resolved]
